FAERS Safety Report 20699468 (Version 2)
Quarter: 2022Q2

REPORT INFORMATION
  Report Type: Spontaneous
  Country: ES (occurrence: ES)
  Receive Date: 20220412
  Receipt Date: 20220419
  Transmission Date: 20220721
  Serious: Yes (Hospitalization, Other)
  Sender: FDA-Public Use
  Company Number: ES-ROVI-20220156

PATIENT
  Age: 23 Year
  Sex: Female
  Weight: 55 kg

DRUGS (5)
  1. IBUPROFEN [Suspect]
     Active Substance: IBUPROFEN
     Indication: Back pain
     Dosage: UNK
     Route: 065
  2. ACETAMINOPHEN [Concomitant]
     Active Substance: ACETAMINOPHEN
     Indication: Back pain
     Dosage: UNK
  3. DIAZEPAM [Concomitant]
     Active Substance: DIAZEPAM
     Indication: Product used for unknown indication
     Dosage: UNK
  4. CYCLOBENZAPRINE [Concomitant]
     Active Substance: CYCLOBENZAPRINE
     Indication: Product used for unknown indication
     Dosage: UNK
  5. AMOXICILLIN [Concomitant]
     Active Substance: AMOXICILLIN
     Indication: Product used for unknown indication
     Dosage: UNK

REACTIONS (3)
  - Renal papillary necrosis [Recovered/Resolved]
  - Acute kidney injury [Recovered/Resolved]
  - Suicide attempt [Unknown]
